FAERS Safety Report 8241515-8 (Version None)
Quarter: 2012Q1

REPORT INFORMATION
  Report Type: 
  Country: None (occurrence: None)
  Receive Date: 20120328
  Receipt Date: 20110615
  Transmission Date: 20120608
  Serious: Yes (Other)
  Sender: FDA-Public Use
  Company Number: US-TYCO HEALTHCARE/MALLINCKRODT-T201101260

PATIENT
  Sex: Male

DRUGS (2)
  1. MORPHINE [Suspect]
     Dosage: UNK
  2. METHADOSE [Suspect]
     Dosage: UNK

REACTIONS (1)
  - HALLUCINATION [None]
